FAERS Safety Report 11334009 (Version 1)
Quarter: 2015Q3

REPORT INFORMATION
  Report Type: Spontaneous
  Country: US (occurrence: US)
  Receive Date: 20150803
  Receipt Date: 20150803
  Transmission Date: 20151125
  Serious: No
  Sender: FDA-Public Use
  Company Number: US-SA-2014SA146003

PATIENT
  Sex: Female

DRUGS (2)
  1. AMBIEN [Suspect]
     Active Substance: ZOLPIDEM TARTRATE
     Indication: INSOMNIA
     Route: 065
  2. AMBIEN [Suspect]
     Active Substance: ZOLPIDEM TARTRATE
     Indication: INSOMNIA
     Dosage: CURRENTLY SHE TAKES A SINGLE DOSE OF 5 MG AND THREE DOSES OF 12.5 MG ER IN A 24-HOUR PERIOD
     Route: 065

REACTIONS (3)
  - Therapeutic response unexpected [Unknown]
  - Intentional product use issue [Unknown]
  - Overdose [Unknown]
